FAERS Safety Report 14820827 (Version 1)
Quarter: 2018Q2

REPORT INFORMATION
  Report Type: Spontaneous
  Country: US (occurrence: US)
  Receive Date: 20180427
  Receipt Date: 20180427
  Transmission Date: 20180711
  Serious: No
  Sender: FDA-Public Use
  Company Number: US-BAUSCH-BL-2017-026553

PATIENT
  Age: 84 Year
  Sex: Female
  Weight: 48.12 kg

DRUGS (3)
  1. SYNTHROID [Concomitant]
     Active Substance: LEVOTHYROXINE SODIUM
     Indication: PRODUCT USED FOR UNKNOWN INDICATION
  2. CRESTOR [Concomitant]
     Active Substance: ROSUVASTATIN CALCIUM
     Indication: PRODUCT USED FOR UNKNOWN INDICATION
  3. ZYCLARA [Suspect]
     Active Substance: IMIQUIMOD
     Indication: PIGMENTATION DISORDER
     Dosage: ONE APPLICATION ONCE NIGHTLY
     Route: 061
     Dates: start: 20170821, end: 20170829

REACTIONS (5)
  - Chest pain [Recovered/Resolved]
  - Erythema [Not Recovered/Not Resolved]
  - Lip swelling [Recovered/Resolved]
  - Lip blister [Recovered/Resolved]
  - Scab [Recovered/Resolved]

NARRATIVE: CASE EVENT DATE: 2017
